FAERS Safety Report 10103020 (Version 1)
Quarter: 2014Q2

REPORT INFORMATION
  Report Type: Spontaneous
  Country: US (occurrence: US)
  Receive Date: 20140424
  Receipt Date: 20140424
  Transmission Date: 20141212
  Serious: No
  Sender: FDA-Public Use
  Company Number: US-BRISTOL-MYERS SQUIBB COMPANY-20077392

PATIENT
  Age: 73 Year
  Sex: Male
  Weight: 99.77 kg

DRUGS (4)
  1. ELIQUIS [Suspect]
     Indication: ATRIAL FIBRILLATION
  2. HYZAAR [Concomitant]
  3. CARDIZEM [Concomitant]
  4. TOPROL XL [Concomitant]

REACTIONS (1)
  - Nasopharyngitis [Unknown]
